FAERS Safety Report 6570467-1 (Version None)
Quarter: 2010Q1

REPORT INFORMATION
  Report Type: 
  Country: None (occurrence: None)
  Receive Date: 20100204
  Receipt Date: 20090804
  Transmission Date: 20100710
  Serious: Yes (Life-Threatening, Hospitalization, Other)
  Sender: FDA-Public Use
  Company Number: A0801198A

PATIENT
  Age: 65 Year
  Sex: Female

DRUGS (14)
  1. ARIXTRA [Suspect]
     Indication: PROPHYLAXIS
     Dosage: 7.5MG PER DAY
     Route: 050
     Dates: start: 20090731, end: 20090801
  2. ALBUTEROL [Concomitant]
  3. ASPIRIN [Concomitant]
  4. NORVASC [Concomitant]
  5. DOBUTAMINE HCL [Concomitant]
  6. DOCUSATE [Concomitant]
  7. LASIX [Concomitant]
  8. IPRATROPIUM [Concomitant]
  9. LOPRESSOR [Concomitant]
  10. PROTONIX [Concomitant]
  11. SIMVASTATIN [Concomitant]
  12. INSULIN DETEMIR [Concomitant]
  13. NOVOLOG [Concomitant]
  14. WARFARIN [Concomitant]
     Dates: end: 20090801

REACTIONS (3)
  - HAEMORRHAGE [None]
  - INTERNATIONAL NORMALISED RATIO INCREASED [None]
  - PULMONARY HAEMORRHAGE [None]
